FAERS Safety Report 6700123-8 (Version None)
Quarter: 2010Q2

REPORT INFORMATION
  Report Type: 
  Country: None (occurrence: None)
  Receive Date: 20100423
  Receipt Date: 20091023
  Transmission Date: 20101027
  Serious: No
  Sender: FDA-Public Use
  Company Number: 2009UF0233

PATIENT
  Sex: Male

DRUGS (2)
  1. ULESFIA [Suspect]
     Indication: LICE INFESTATION
     Dosage: ONCE
     Dates: start: 20091022, end: 20091022
  2. RID MOUSSE [Suspect]
     Indication: LICE INFESTATION
     Dates: start: 20091021, end: 20091021

REACTIONS (1)
  - BURNING SENSATION [None]
